FAERS Safety Report 11021650 (Version 1)
Quarter: 2015Q2

REPORT INFORMATION
  Report Type: Spontaneous
  Country: NL (occurrence: NL)
  Receive Date: 20150413
  Receipt Date: 20150413
  Transmission Date: 20150821
  Serious: Yes (Hospitalization, Other)
  Sender: FDA-Public Use
  Company Number: NL-BAYER-2015-115119

PATIENT
  Age: 28 Year
  Sex: Female

DRUGS (1)
  1. MIRENA [Suspect]
     Active Substance: LEVONORGESTREL
     Indication: CONTRACEPTION
     Dosage: 20 MCG/24HR, CONT
     Route: 015
     Dates: start: 20140529, end: 20150327

REACTIONS (10)
  - Gastrointestinal tract irritation [Recovered/Resolved]
  - Device dislocation [None]
  - Abdominal distension [Recovered/Resolved]
  - Hirsutism [None]
  - Device difficult to use [None]
  - Onychoclasis [None]
  - Weight increased [None]
  - Acne [None]
  - Alopecia [None]
  - Abdominal pain lower [Recovered/Resolved]

NARRATIVE: CASE EVENT DATE: 2014
